FAERS Safety Report 5969001-6 (Version None)
Quarter: 2008Q4

REPORT INFORMATION
  Report Type: 
  Country: None (occurrence: None)
  Receive Date: 20081126
  Receipt Date: 20081117
  Transmission Date: 20090506
  Serious: No
  Sender: FDA-Public Use
  Company Number: CA-ELI_LILLY_AND_COMPANY-CA200811004315

PATIENT
  Age: 56 Year
  Sex: Female

DRUGS (3)
  1. CYMBALTA [Suspect]
     Indication: FIBROMYALGIA
     Dosage: 60 MG, DAILY (1/D)
     Route: 048
     Dates: end: 20081114
  2. VITAMIN B [Concomitant]
  3. MINERALS NOS [Concomitant]

REACTIONS (10)
  - ANOREXIA [None]
  - CONFUSIONAL STATE [None]
  - FATIGUE [None]
  - FLATULENCE [None]
  - HEPATIC STEATOSIS [None]
  - LIVER DISORDER [None]
  - LIVER FUNCTION TEST ABNORMAL [None]
  - NAUSEA [None]
  - PRURITUS [None]
  - VOMITING [None]
